FAERS Safety Report 5550126-4 (Version None)
Quarter: 2007Q4

REPORT INFORMATION
  Report Type: 
  Country: None (occurrence: None)
  Receive Date: 20071212
  Receipt Date: 20070424
  Transmission Date: 20080405
  Serious: No
  Sender: FDA-Public Use
  Company Number: US-AMGEN-KDL219053

PATIENT
  Sex: Female

DRUGS (1)
  1. ENBREL [Suspect]
     Indication: RHEUMATOID ARTHRITIS
     Route: 058
     Dates: start: 20030313

REACTIONS (6)
  - AMNESIA [None]
  - BACK PAIN [None]
  - CONFUSIONAL STATE [None]
  - NECK PAIN [None]
  - NEUROLOGICAL SYMPTOM [None]
  - POST CONCUSSION SYNDROME [None]
